FAERS Safety Report 13074367 (Version 1)
Quarter: 2016Q4

REPORT INFORMATION
  Report Type: Spontaneous
  Country: IT (occurrence: IT)
  Receive Date: 20161230
  Receipt Date: 20161230
  Transmission Date: 20170207
  Serious: Yes (Hospitalization)
  Sender: FDA-Public Use
  Company Number: IT-SA-2016SA232033

PATIENT
  Age: 81 Year
  Sex: Male

DRUGS (14)
  1. TAMSULOSIN HYDROCHLORIDE. [Concomitant]
     Active Substance: TAMSULOSIN HYDROCHLORIDE
     Route: 048
  2. PLAVIX [Concomitant]
     Active Substance: CLOPIDOGREL BISULFATE
     Route: 048
  3. REMERON [Concomitant]
     Active Substance: MIRTAZAPINE
     Route: 048
  4. LASIX [Concomitant]
     Active Substance: FUROSEMIDE
     Route: 048
  5. EUTIROX [Concomitant]
     Active Substance: LEVOTHYROXINE SODIUM
     Route: 048
  6. LUVION [Concomitant]
     Active Substance: CANRENONE
     Route: 048
  7. NITRO-DUR [Concomitant]
     Active Substance: NITROGLYCERIN
     Route: 062
  8. CARDIOASPIRIN [Concomitant]
     Active Substance: ASPIRIN
     Route: 048
  9. LANTUS [Suspect]
     Active Substance: INSULIN GLARGINE
     Indication: TYPE 2 DIABETES MELLITUS
     Dosage: DOSE:1 UNIT(S)
     Route: 058
     Dates: start: 20160101, end: 20161113
  10. BISOPROLOL HEMIFUMARATE [Concomitant]
     Active Substance: BISOPROLOL FUMARATE
     Route: 048
  11. HUMALOG [Suspect]
     Active Substance: INSULIN LISPRO
     Indication: TYPE 2 DIABETES MELLITUS
     Dosage: DOSE:1 UNIT(S)
     Route: 058
     Dates: start: 20160101, end: 20161113
  12. ALLOPURINOL. [Concomitant]
     Active Substance: ALLOPURINOL
     Route: 048
  13. LANSOX [Concomitant]
     Active Substance: LANSOPRAZOLE
  14. MEDROL [Concomitant]
     Active Substance: METHYLPREDNISOLONE
     Route: 048

REACTIONS (4)
  - Dyspnoea [Unknown]
  - Tremor [Unknown]
  - Hypoglycaemia [Unknown]
  - Asthenia [Unknown]

NARRATIVE: CASE EVENT DATE: 20161113
